FAERS Safety Report 20134334 (Version 2)
Quarter: 2021Q4

REPORT INFORMATION
  Report Type: Report from Study
  Country: BR (occurrence: BR)
  Receive Date: 20211201
  Receipt Date: 20211210
  Transmission Date: 20220303
  Serious: Yes (Hospitalization, Other)
  Sender: FDA-Public Use
  Company Number: BR-NOVARTISPH-NVSC2021BR271931

PATIENT
  Age: 80 Year
  Sex: Female

DRUGS (8)
  1. RIBOCICLIB [Suspect]
     Active Substance: RIBOCICLIB
     Indication: Breast cancer metastatic
     Dosage: 1 ST CYCLE
     Route: 065
     Dates: start: 20180410
  2. RIBOCICLIB [Suspect]
     Active Substance: RIBOCICLIB
     Dosage: 2ND CYCLE
     Route: 065
     Dates: start: 20180522
  3. RIBOCICLIB [Suspect]
     Active Substance: RIBOCICLIB
     Dosage: 600 MG, QD
     Route: 065
  4. RIBOCICLIB [Suspect]
     Active Substance: RIBOCICLIB
     Dosage: 400 MG, QD (BEGINNING OF THE 27TH CYCLE)
     Route: 065
     Dates: start: 20200608
  5. RIBOCICLIB [Suspect]
     Active Substance: RIBOCICLIB
     Dosage: 43 TH CYCLE
     Route: 065
     Dates: start: 20210110
  6. RIBOCICLIB [Suspect]
     Active Substance: RIBOCICLIB
     Dosage: 44 TH CYCLE
     Route: 065
     Dates: start: 20211029
  7. LETROZOLE [Suspect]
     Active Substance: LETROZOLE
     Indication: Breast cancer metastatic
     Dosage: UNK
     Route: 065
     Dates: start: 20180410
  8. ZOMETA [Suspect]
     Active Substance: ZOLEDRONIC ACID
     Indication: Breast cancer metastatic
     Dosage: UNK
     Route: 065
     Dates: start: 20180410

REACTIONS (6)
  - COVID-19 [Unknown]
  - Neutropenia [Unknown]
  - Metastases to bone [Unknown]
  - Pain [Unknown]
  - Pulmonary mass [Unknown]
  - Mass [Unknown]

NARRATIVE: CASE EVENT DATE: 20180508
